FAERS Safety Report 14675123 (Version 2)
Quarter: 2018Q1

REPORT INFORMATION
  Report Type: Report from Study
  Country: None (occurrence: DE)
  Receive Date: 20180323
  Receipt Date: 20180330
  Transmission Date: 20180509
  Serious: Yes (Death, Hospitalization, Other)
  Sender: FDA-Public Use
  Company Number: DE-ABBVIE-18K-062-2297961-00

PATIENT
  Age: 81 Year
  Sex: Male

DRUGS (1)
  1. DUODOPA [Suspect]
     Active Substance: CARBIDOPA\LEVODOPA
     Indication: PARKINSON^S DISEASE
     Dosage: MD 10 ML; CRD 2 ML/HR; ED 2.5 ML
     Route: 050
     Dates: start: 20090108

REACTIONS (10)
  - Brain injury [Fatal]
  - Fluid retention [Fatal]
  - General physical health deterioration [Fatal]
  - Dementia [Unknown]
  - Hypotension [Fatal]
  - Unresponsive to stimuli [Fatal]
  - Loss of consciousness [Unknown]
  - Pyrexia [Fatal]
  - Cardiac arrest [Fatal]
  - Hyporeflexia [Fatal]

NARRATIVE: CASE EVENT DATE: 201712
